FAERS Safety Report 10504236 (Version 5)
Quarter: 2015Q2

REPORT INFORMATION
  Report Type: Report from Study
  Country: JP (occurrence: JP)
  Receive Date: 20141008
  Receipt Date: 20150403
  Transmission Date: 20150821
  Serious: Yes (Other)
  Sender: FDA-Public Use
  Company Number: JP-ASTELLAS-2014JP022529

PATIENT
  Age: 3 Year
  Sex: Male
  Weight: 13 kg

DRUGS (42)
  1. TACROLIMUS. [Suspect]
     Active Substance: TACROLIMUS
     Dosage: 0.8 MG, TWICE DAILY
     Route: 048
     Dates: start: 20110316, end: 20110419
  2. TACROLIMUS. [Suspect]
     Active Substance: TACROLIMUS
     Dosage: 0.5 MG, TWICE DAILY
     Route: 048
     Dates: start: 20120410, end: 20130108
  3. PREDONINE [Concomitant]
     Active Substance: PREDNISOLONE\PREDNISOLONE ACETATE\PREDNISOLONE SODIUM SUCCINATE
     Route: 042
     Dates: start: 20100420, end: 20100425
  4. PREDONINE [Concomitant]
     Active Substance: PREDNISOLONE\PREDNISOLONE ACETATE\PREDNISOLONE SODIUM SUCCINATE
     Route: 042
     Dates: start: 20100510, end: 20100520
  5. PREDNISOLONE. [Concomitant]
     Active Substance: PREDNISOLONE
     Dosage: 2.5MG/DAY, THRICE DAILY
     Route: 048
     Dates: start: 20100623, end: 20100704
  6. PREDNISOLONE. [Concomitant]
     Active Substance: PREDNISOLONE
     Route: 048
     Dates: start: 20110802, end: 20110926
  7. PREDNISOLONE. [Concomitant]
     Active Substance: PREDNISOLONE
     Route: 048
     Dates: start: 20130109, end: 20130120
  8. PREDNISOLONE. [Concomitant]
     Active Substance: PREDNISOLONE
     Route: 048
     Dates: start: 20130121
  9. TACROLIMUS. [Suspect]
     Active Substance: TACROLIMUS
     Indication: ENTEROCOLITIS
     Dosage: 0.1 MG, TWICE DAILY
     Route: 048
     Dates: start: 20100329, end: 20100330
  10. PREDONINE [Concomitant]
     Active Substance: PREDNISOLONE\PREDNISOLONE ACETATE\PREDNISOLONE SODIUM SUCCINATE
     Route: 042
     Dates: start: 20100503, end: 20100509
  11. PREDNISOLONE. [Concomitant]
     Active Substance: PREDNISOLONE
     Indication: ENTEROCOLITIS
     Route: 048
     Dates: start: 20100521, end: 20100622
  12. PREDNISOLONE. [Concomitant]
     Active Substance: PREDNISOLONE
     Route: 048
     Dates: start: 20110406, end: 20110419
  13. PREDNISOLONE. [Concomitant]
     Active Substance: PREDNISOLONE
     Route: 048
     Dates: start: 20110615, end: 20110801
  14. IMURAN [Concomitant]
     Active Substance: AZATHIOPRINE
     Indication: ENTEROCOLITIS
     Route: 048
     Dates: start: 20100524, end: 20100622
  15. IMURAN [Concomitant]
     Active Substance: AZATHIOPRINE
     Route: 048
     Dates: start: 20101015, end: 20110315
  16. PREDONINE [Concomitant]
     Active Substance: PREDNISOLONE\PREDNISOLONE ACETATE\PREDNISOLONE SODIUM SUCCINATE
     Route: 042
     Dates: start: 20100426, end: 20100502
  17. PREDNISOLONE. [Concomitant]
     Active Substance: PREDNISOLONE
     Route: 048
     Dates: start: 20100705, end: 20100831
  18. TACROLIMUS. [Suspect]
     Active Substance: TACROLIMUS
     Dosage: 0.3 MG, TWICE DAILY
     Route: 048
     Dates: start: 20100804, end: 20100816
  19. TACROLIMUS. [Suspect]
     Active Substance: TACROLIMUS
     Dosage: 0.6 MG, TWICE DAILY
     Route: 048
     Dates: start: 20101224, end: 20110315
  20. TACROLIMUS. [Suspect]
     Active Substance: TACROLIMUS
     Dosage: 0.5 MG, TWICE DAILY
     Route: 048
     Dates: start: 20130121, end: 20130610
  21. TACROLIMUS. [Suspect]
     Active Substance: TACROLIMUS
     Dosage: 0.6 MG, TWICE DAILY
     Route: 048
     Dates: start: 20130611
  22. PREDONINE [Concomitant]
     Active Substance: PREDNISOLONE\PREDNISOLONE ACETATE\PREDNISOLONE SODIUM SUCCINATE
     Indication: ENTEROCOLITIS
     Route: 042
     Dates: start: 20100320, end: 20100403
  23. PREDONINE [Concomitant]
     Active Substance: PREDNISOLONE\PREDNISOLONE ACETATE\PREDNISOLONE SODIUM SUCCINATE
     Dosage: 10MG/DAY, THRICE DAILY
     Route: 042
     Dates: start: 20100404, end: 20100419
  24. PREDNISOLONE. [Concomitant]
     Active Substance: PREDNISOLONE
     Route: 048
     Dates: start: 20100913, end: 20110405
  25. IMURAN [Concomitant]
     Active Substance: AZATHIOPRINE
     Route: 048
     Dates: start: 20100622, end: 20101014
  26. TACROLIMUS. [Suspect]
     Active Substance: TACROLIMUS
     Dosage: 0.1 MG, TWICE DAILY
     Route: 048
     Dates: start: 20100409, end: 20100413
  27. TACROLIMUS. [Suspect]
     Active Substance: TACROLIMUS
     Dosage: 0.6 MG, TWICE DAILY
     Route: 048
     Dates: start: 20110420, end: 20120409
  28. PREDNISOLONE. [Concomitant]
     Active Substance: PREDNISOLONE
     Route: 048
     Dates: start: 20120306, end: 20130108
  29. IMURAN [Concomitant]
     Active Substance: AZATHIOPRINE
     Route: 048
     Dates: start: 20110316, end: 20110529
  30. TACROLIMUS. [Suspect]
     Active Substance: TACROLIMUS
     Indication: ENTEROCOLITIS
     Dosage: 0.25 MG, CONTINUOUS
     Route: 042
     Dates: start: 20100323, end: 20100324
  31. TACROLIMUS. [Suspect]
     Active Substance: TACROLIMUS
     Dosage: 0.4 MG, TWICE DAILY
     Route: 048
     Dates: start: 20100817, end: 20101223
  32. PREDNISOLONE. [Concomitant]
     Active Substance: PREDNISOLONE
     Dosage: 0.75 MG, TWICE DAILY
     Route: 048
     Dates: start: 20100901, end: 20100912
  33. PREDNISOLONE. [Concomitant]
     Active Substance: PREDNISOLONE
     Route: 048
     Dates: start: 20110420, end: 20110614
  34. PREDNISOLONE. [Concomitant]
     Active Substance: PREDNISOLONE
     Route: 048
     Dates: start: 20110927, end: 20120305
  35. IMURAN [Concomitant]
     Active Substance: AZATHIOPRINE
     Route: 048
     Dates: start: 20110530
  36. TACROLIMUS. [Suspect]
     Active Substance: TACROLIMUS
     Dosage: 0.2 MG, ONCE DAILY
     Route: 048
     Dates: start: 20100330, end: 20100331
  37. TACROLIMUS. [Suspect]
     Active Substance: TACROLIMUS
     Dosage: 0.2 MG, TWICE DAILY
     Route: 048
     Dates: start: 20100414, end: 20100616
  38. TACROLIMUS. [Suspect]
     Active Substance: TACROLIMUS
     Dosage: 0.3 MG, TWICE DAILY
     Route: 048
     Dates: start: 20100617, end: 20100704
  39. TACROLIMUS. [Suspect]
     Active Substance: TACROLIMUS
     Dosage: 0.2 MG, TWICE DAILY
     Route: 048
     Dates: start: 20100705, end: 20100803
  40. TACROLIMUS. [Suspect]
     Active Substance: TACROLIMUS
     Dosage: 0.3 MG, TWICE DAILY
     Route: 048
     Dates: start: 20100331, end: 20100403
  41. TACROLIMUS. [Suspect]
     Active Substance: TACROLIMUS
     Dosage: 0.2 MG, TWICE DAILY
     Route: 048
     Dates: start: 20100403, end: 20100409
  42. TACROLIMUS. [Suspect]
     Active Substance: TACROLIMUS
     Dosage: 0.6 MG, TWICE DAILY
     Route: 048
     Dates: start: 20130109, end: 20130120

REACTIONS (2)
  - Renal disorder [Unknown]
  - Off label use [Unknown]

NARRATIVE: CASE EVENT DATE: 20100323
